FAERS Safety Report 23759710 (Version 3)
Quarter: 2024Q4

REPORT INFORMATION
  Report Type: Spontaneous
  Country: US (occurrence: US)
  Receive Date: 20240419
  Receipt Date: 20241212
  Transmission Date: 20250114
  Serious: Yes (Hospitalization)
  Sender: SERVIER
  Company Number: US-SERVIER-S24004020

PATIENT

DRUGS (1)
  1. ASPARLAS [Suspect]
     Active Substance: CALASPARGASE PEGOL-MKNL
     Indication: Acute lymphocytic leukaemia
     Dosage: 1670 U, ONE DOSE
     Route: 042
     Dates: start: 20240318, end: 20240318

REACTIONS (4)
  - Superior sagittal sinus thrombosis [Recovering/Resolving]
  - Haemorrhage intracranial [Recovering/Resolving]
  - Cerebral venous thrombosis [Recovering/Resolving]
  - Full blood count decreased [Unknown]

NARRATIVE: CASE EVENT DATE: 20240301
